FAERS Safety Report 15728834 (Version 1)
Quarter: 2018Q4

REPORT INFORMATION
  Report Type: Spontaneous
  Country: IT (occurrence: IT)
  Receive Date: 20181217
  Receipt Date: 20181217
  Transmission Date: 20190205
  Serious: Yes (Death)
  Sender: FDA-Public Use
  Company Number: PHHY2018IT186046

PATIENT
  Age: 76 Year
  Sex: Female

DRUGS (4)
  1. ZOLPIDEM [Suspect]
     Active Substance: ZOLPIDEM\ZOLPIDEM TARTRATE
     Indication: PRODUCT USED FOR UNKNOWN INDICATION
     Dosage: 10 MG, QD
     Route: 065
  2. PRAMIPEXOLE. [Suspect]
     Active Substance: PRAMIPEXOLE
     Indication: PARKINSON^S DISEASE
     Dosage: 1.05 MG, QD
     Route: 065
  3. LEVODOPA+CARBIDOPA [Suspect]
     Active Substance: CARBIDOPA\LEVODOPA
     Indication: PARKINSON^S DISEASE
     Dosage: 1200 MG, QD
     Route: 065
  4. VENLAFAXINE [Suspect]
     Active Substance: VENLAFAXINE HYDROCHLORIDE
     Indication: PRODUCT USED FOR UNKNOWN INDICATION
     Dosage: 75 MG, QD
     Route: 065

REACTIONS (13)
  - Hypernatraemia [Fatal]
  - Pyrexia [Fatal]
  - Dyskinesia [Fatal]
  - Orthostatic hypotension [Fatal]
  - Tachycardia [Fatal]
  - Myocardial ischaemia [Fatal]
  - Acute pulmonary oedema [Fatal]
  - Hallucination, visual [Fatal]
  - Respiratory distress [Fatal]
  - Dehydration [Fatal]
  - Blood creatine phosphokinase increased [Fatal]
  - Parkinsonism hyperpyrexia syndrome [Fatal]
  - Leukocytosis [Fatal]
